FAERS Safety Report 8461541-3 (Version None)
Quarter: 2012Q2

REPORT INFORMATION
  Report Type: 
  Country: None (occurrence: None)
  Receive Date: 20120625
  Receipt Date: 20120621
  Transmission Date: 20120825
  Serious: Yes (Death, Life-Threatening, Other)
  Sender: FDA-Public Use
  Company Number: FR-B.I. PHARMACEUTICALS,INC./RIDGEFIELD-2011-FF-00451FF

PATIENT
  Age: 68 Year
  Sex: Male

DRUGS (4)
  1. PRADAXA [Suspect]
     Indication: HIP ARTHROPLASTY
     Dosage: 220 MG
     Route: 048
     Dates: start: 20110420, end: 20110424
  2. NSAID'S [Concomitant]
     Dates: start: 20110419
  3. PRADAXA [Suspect]
     Indication: THROMBOSIS PROPHYLAXIS
     Dosage: 110 MG
     Route: 048
     Dates: start: 20110419, end: 20110419
  4. ANTALGICS [Concomitant]
     Dates: start: 20110419

REACTIONS (14)
  - COMA [None]
  - HEADACHE [None]
  - MALAISE [None]
  - NERVOUS SYSTEM DISORDER [None]
  - HYPERTENSIVE CRISIS [None]
  - CONGENITAL CEREBROVASCULAR ANOMALY [None]
  - CEREBRAL HAEMORRHAGE [None]
  - PALLOR [None]
  - VOMITING [None]
  - APHASIA [None]
  - EXTENSOR PLANTAR RESPONSE [None]
  - HYPERHIDROSIS [None]
  - NEUROLOGICAL SYMPTOM [None]
  - HAEMORRHAGIC STROKE [None]
